FAERS Safety Report 26196408 (Version 1)
Quarter: 2025Q4

REPORT INFORMATION
  Report Type: Spontaneous
  Country: CN (occurrence: CN)
  Receive Date: 20251224
  Receipt Date: 20251224
  Transmission Date: 20260118
  Serious: Yes (Other)
  Sender: ELI LILLY AND COMPANY
  Company Number: CN-Merck Healthcare KGaA-2025065298

PATIENT
  Age: 73 Year
  Sex: Male
  Weight: 60 kg

DRUGS (8)
  1. ERBITUX [Suspect]
     Active Substance: CETUXIMAB
     Indication: Adenocarcinoma of colon
     Dosage: 800 MG, OTHER(ONCE IN 18 DAYS)
     Route: 041
     Dates: start: 20251120
  2. IRINOTECAN HYDROCHLORIDE [Suspect]
     Active Substance: IRINOTECAN HYDROCHLORIDE
     Indication: Adenocarcinoma of colon
     Dosage: 280 MG, UNK
     Route: 041
     Dates: start: 20251120, end: 20251208
  3. FLUOROURACIL [Suspect]
     Active Substance: FLUOROURACIL
     Indication: Adenocarcinoma of colon
     Dosage: .5 G, UNK
     Route: 041
     Dates: start: 20251120, end: 20251208
  4. FLUOROURACIL [Suspect]
     Active Substance: FLUOROURACIL
     Dosage: 4 G, UNK
     Route: 042
     Dates: start: 20251120, end: 20251208
  5. SODIUM CHLORIDE [Concomitant]
     Active Substance: SODIUM CHLORIDE
     Indication: Medication dilution
     Dosage: 250 ML, UNK
     Route: 041
     Dates: start: 20251120, end: 20251208
  6. SODIUM CHLORIDE [Concomitant]
     Active Substance: SODIUM CHLORIDE
     Dosage: 100 ML, UNK
     Route: 041
     Dates: start: 20251120, end: 20251208
  7. SODIUM CHLORIDE [Concomitant]
     Active Substance: SODIUM CHLORIDE
     Dosage: 80 ML, UNK
     Route: 041
     Dates: start: 20251120, end: 20251208
  8. SODIUM CHLORIDE [Concomitant]
     Active Substance: SODIUM CHLORIDE
     Dosage: 500 ML, UNK
     Route: 041
     Dates: start: 20251120, end: 20251208

REACTIONS (2)
  - Neutrophil count decreased [Recovered/Resolved]
  - White blood cell count decreased [Recovered/Resolved]

NARRATIVE: CASE EVENT DATE: 20251207
